FAERS Safety Report 11540556 (Version 1)
Quarter: 2015Q3

REPORT INFORMATION
  Report Type: Spontaneous
  Country: US (occurrence: US)
  Receive Date: 20150923
  Receipt Date: 20150923
  Transmission Date: 20151125
  Serious: No
  Sender: FDA-Public Use
  Company Number: US-BEH-2015049689

PATIENT

DRUGS (3)
  1. PRIVIGEN [Suspect]
     Active Substance: HUMAN IMMUNOGLOBULIN G
     Indication: PRODUCT USED FOR UNKNOWN INDICATION
     Dosage: NOT SURE IF TOTAL DOSE WAS 120 G
     Dates: start: 20150304
  2. PRIVIGEN [Suspect]
     Active Substance: HUMAN IMMUNOGLOBULIN G
     Dosage: NOT SURE IF TOTAL DOSE WAS 120 G
     Dates: start: 20150305
  3. PRIVIGEN [Suspect]
     Active Substance: HUMAN IMMUNOGLOBULIN G
     Dosage: NOT SURE IF TOTAL DOSE WAS 120 G
     Dates: start: 20150306

REACTIONS (1)
  - Antibody test negative [Unknown]
